FAERS Safety Report 9785715 (Version 2)
Quarter: 2014Q2

REPORT INFORMATION
  Report Type: Spontaneous
  Country: JP (occurrence: JP)
  Receive Date: 20131227
  Receipt Date: 20140530
  Transmission Date: 20141212
  Serious: Yes (Hospitalization)
  Sender: FDA-Public Use
  Company Number: JP-JNJFOC-20131215525

PATIENT
  Age: 28 Year
  Sex: Male
  Weight: 54 kg

DRUGS (10)
  1. REMICADE [Suspect]
     Indication: CROHN^S DISEASE
     Route: 042
     Dates: start: 20131213
  2. REMICADE [Suspect]
     Indication: CROHN^S DISEASE
     Route: 042
     Dates: start: 20140110
  3. IMURAN [Concomitant]
     Indication: CROHN^S DISEASE
     Dosage: 100 MG AND 50 MG
     Route: 048
     Dates: start: 20131213, end: 20140307
  4. PENTASA [Concomitant]
     Indication: CROHN^S DISEASE
     Dosage: 2000 MG AND 500 MG
     Route: 048
  5. MIYA-BM [Concomitant]
     Indication: CROHN^S DISEASE
     Dosage: 3 G AND 1 G.
     Route: 048
  6. ASPARA-CA [Concomitant]
     Indication: OSTEOPOROSIS
     Dosage: 600 MG AND 200 MG.
     Route: 048
  7. NAUZELIN [Concomitant]
     Indication: VOMITING
     Dosage: 30 MG AND 10 MG.
     Route: 048
  8. NAUZELIN [Concomitant]
     Indication: NAUSEA
     Dosage: 30 MG AND 10 MG.
     Route: 048
  9. NAUZELIN [Concomitant]
     Indication: GASTROOESOPHAGEAL REFLUX DISEASE
     Dosage: 30 MG AND 10 MG.
     Route: 048
  10. NEXIUM [Concomitant]
     Indication: GASTROOESOPHAGEAL REFLUX DISEASE
     Route: 048

REACTIONS (1)
  - Hepatic function abnormal [Recovering/Resolving]
